FAERS Safety Report 8849217 (Version 1)
Quarter: 2012Q4

REPORT INFORMATION
  Report Type: Spontaneous
  Country: US (occurrence: None)
  Receive Date: 20121017
  Receipt Date: 20121017
  Transmission Date: 20130627
  Serious: Yes (Other)
  Sender: FDA-Public Use
  Company Number: VAL_00926_2012

PATIENT
  Sex: Female

DRUGS (1)
  1. LOPRESSOR [Suspect]
     Indication: PRODUCT USED FOR UNKNOWN INDICATION
     Dosage: (DF)

REACTIONS (5)
  - Throat tightness [None]
  - Erythema [None]
  - Palpitations [None]
  - Pruritus [None]
  - Rash [None]
